FAERS Safety Report 5606702-3 (Version None)
Quarter: 2008Q1

REPORT INFORMATION
  Report Type: 
  Country: None (occurrence: None)
  Receive Date: 20080129
  Receipt Date: 20070207
  Transmission Date: 20080703
  Serious: No
  Sender: FDA-Public Use
  Company Number: US-BAUSCH-2007BL000425

PATIENT
  Age: 26 Year
  Sex: Female

DRUGS (2)
  1. NEOMYCIN AND POLYMYXIN B SULFATES AND GRAMICIDIN OPHTHALMIC SOLUTION [Suspect]
     Indication: CONJUNCTIVAL OEDEMA
     Route: 047
     Dates: start: 20070206, end: 20070207
  2. NEOMYCIN AND POLYMYXIN B SULFATES AND GRAMICIDIN OPHTHALMIC SOLUTION [Suspect]
     Indication: EYE INFECTION
     Route: 047
     Dates: start: 20070206, end: 20070207

REACTIONS (5)
  - DRUG DISPENSING ERROR [None]
  - EXPIRED DRUG ADMINISTERED [None]
  - EYE IRRITATION [None]
  - MEDICATION ERROR [None]
  - VISION BLURRED [None]
